FAERS Safety Report 4522517-1 (Version None)
Quarter: 2004Q4

REPORT INFORMATION
  Report Type: 
  Country: None (occurrence: None)
  Receive Date: 20041207
  Receipt Date: 20041124
  Transmission Date: 20050328
  Serious: Yes (Death, Life-Threatening)
  Sender: FDA-Public Use
  Company Number: 2004099326

PATIENT
  Age: 68 Year
  Sex: Male
  Weight: 75 kg

DRUGS (7)
  1. VFEND [Suspect]
     Indication: ASPERGILLOSIS
     Dosage: 400 MG (I D), INTRAVENOUS
     Route: 042
     Dates: start: 20030904, end: 20030901
  2. VERAPAMIL HCL [Suspect]
     Indication: ESSENTIAL HYPERTENSION
     Dosage: 240 MG (120 MG, 2 IN 1 D), ORAL
     Route: 048
     Dates: start: 20030905, end: 20030901
  3. AMPHOTERICIN B [Concomitant]
  4. POTASSIUM CHLORIDE [Concomitant]
  5. ACETYLSALICYLIC ACID SRT [Concomitant]
  6. ALPRAZOLAM [Concomitant]
  7. HEPARIN CALCIUM [Concomitant]

REACTIONS (10)
  - BRADYCARDIA [None]
  - CARDIOGENIC SHOCK [None]
  - CAROTID ARTERY THROMBOSIS [None]
  - COMA [None]
  - CONDUCTION DISORDER [None]
  - DECEREBRATION [None]
  - DRUG INTERACTION [None]
  - GENERAL PHYSICAL HEALTH DETERIORATION [None]
  - HAEMODYNAMIC INSTABILITY [None]
  - HEMIPLEGIA [None]
